FAERS Safety Report 23281547 (Version 2)
Quarter: 2023Q4

REPORT INFORMATION
  Report Type: Spontaneous
  Country: DE (occurrence: DE)
  Receive Date: 20231211
  Receipt Date: 20231221
  Transmission Date: 20240110
  Serious: Yes (Other)
  Sender: FDA-Public Use
  Company Number: DE-BoehringerIngelheim-2023-BI-276531

PATIENT
  Age: 65 Year
  Sex: Male
  Weight: 118 kg

DRUGS (12)
  1. JARDIANCE [Suspect]
     Active Substance: EMPAGLIFLOZIN
     Indication: Product used for unknown indication
     Dates: start: 202108
  2. Ivabradin 5 [Concomitant]
     Indication: Product used for unknown indication
  3. Ivabradin 5 [Concomitant]
     Dosage: 1-0-0
  4. EPLERENONE [Concomitant]
     Active Substance: EPLERENONE
     Indication: Product used for unknown indication
     Dosage: 25
  5. EPLERENONE [Concomitant]
     Active Substance: EPLERENONE
     Dosage: 50?1-0-0
  6. Candesartan 4 [Concomitant]
     Indication: Product used for unknown indication
     Dates: start: 20170327
  7. Candesartan 4 [Concomitant]
     Dosage: 1-1-1
     Dates: start: 20170424
  8. ENTRESTO [Concomitant]
     Active Substance: SACUBITRIL\VALSARTAN
     Dosage: 24/26
  9. ENTRESTO [Concomitant]
     Active Substance: SACUBITRIL\VALSARTAN
     Dosage: 24/26?1-0-1-1
  10. ENTRESTO [Concomitant]
     Active Substance: SACUBITRIL\VALSARTAN
     Dosage: 49/51?1-0-1
     Dates: start: 20170522
  11. ENTRESTO [Concomitant]
     Active Substance: SACUBITRIL\VALSARTAN
     Dosage: 24/26?1-0-1
     Dates: start: 20170522
  12. ENTRESTO [Concomitant]
     Active Substance: SACUBITRIL\VALSARTAN
     Dosage: 49/51?1-0-1-1
     Dates: start: 201811

REACTIONS (1)
  - Ventricular tachycardia [Unknown]

NARRATIVE: CASE EVENT DATE: 20220601
